FAERS Safety Report 8372103-0 (Version None)
Quarter: 2012Q2

REPORT INFORMATION
  Report Type: 
  Country: None (occurrence: None)
  Receive Date: 20120521
  Receipt Date: 20120509
  Transmission Date: 20120825
  Serious: Yes (Hospitalization, Other)
  Sender: FDA-Public Use
  Company Number: FR-AMGEN-FRASP2012030321

PATIENT
  Age: 69 Year
  Sex: Female

DRUGS (9)
  1. MABTHERA [Suspect]
     Indication: RHEUMATOID ARTHRITIS
     Dosage: UNK
     Route: 042
     Dates: start: 20090101, end: 20100101
  2. IMODIUM [Concomitant]
     Dosage: UNK
  3. PREDNISONE TAB [Concomitant]
     Dosage: UNK
  4. TOCILIZUMAB [Suspect]
     Indication: RHEUMATOID ARTHRITIS
     Dosage: UNK
     Route: 042
     Dates: start: 20100801, end: 20101101
  5. FERROUS SULFATE TAB [Concomitant]
     Dosage: UNK
  6. ARIXTRA [Concomitant]
     Dosage: UNK
  7. ACETAMINOPHEN [Concomitant]
     Dosage: UNK
  8. ENBREL [Suspect]
     Indication: RHEUMATOID ARTHRITIS
     Dosage: UNK
     Route: 058
     Dates: start: 20080101, end: 20080101
  9. SMECTA                             /00837601/ [Concomitant]
     Dosage: UNK

REACTIONS (12)
  - LYMPHOPENIA [None]
  - PERITONITIS [None]
  - HEPATOCELLULAR INJURY [None]
  - ANAEMIA [None]
  - ARTHRALGIA [None]
  - CYTOMEGALOVIRUS COLITIS [None]
  - LYMPHOMA [None]
  - LYMPHADENOPATHY [None]
  - ABSCESS [None]
  - WEIGHT DECREASED [None]
  - PULMONARY EMBOLISM [None]
  - NECK PAIN [None]
